FAERS Safety Report 8664549 (Version 2)
Quarter: 2012Q4

REPORT INFORMATION
  Report Type: 
  Country: AU (occurrence: AU)
  Receive Date: 20120713
  Receipt Date: 20121026
  Transmission Date: 20130627
  Serious: Yes (Hospitalization)
  Sender: FDA-Public Use
  Company Number: AU-ALLERGAN-1209249US

PATIENT
  Age: 85 Year
  Sex: Male

DRUGS (1)
  1. ACULAR [Suspect]
     Indication: INTRAOPERATIVE CARE
     Dosage: 1 Gtt, qam
     Route: 047
     Dates: start: 20120509, end: 201205

REACTIONS (1)
  - Toxic anterior segment syndrome [Recovered/Resolved]
